FAERS Safety Report 8236737-6 (Version None)
Quarter: 2012Q1

REPORT INFORMATION
  Report Type: 
  Country: None (occurrence: None)
  Receive Date: 20120323
  Receipt Date: 20120312
  Transmission Date: 20120608
  Serious: Yes (Death)
  Sender: FDA-Public Use
  Company Number: US-2011-3438

PATIENT
  Age: 57 Year
  Sex: Male

DRUGS (16)
  1. CETUXIMAB [Suspect]
     Indication: LUNG CANCER METASTATIC
     Dosage: 780 MG IV
     Route: 042
     Dates: start: 20110629, end: 20111116
  2. DECADRON [Concomitant]
  3. BENZONATATE [Concomitant]
  4. PHENERGAN EXPECTORANT W/ CODEINE [Concomitant]
  5. ISOPROTERENOL HCL [Concomitant]
  6. LEVAQUIN [Concomitant]
  7. CISPLATIN [Suspect]
     Indication: LUNG CANCER METASTATIC
     Dosage: 156 MG IV
     Route: 042
     Dates: start: 20110629, end: 20111102
  8. DIOVAN [Concomitant]
  9. COMPAZINE [Concomitant]
  10. ALBUTEROL [Concomitant]
  11. RANITIDINE [Concomitant]
  12. VINORELBINE [Suspect]
     Indication: LUNG CANCER METASTATIC
     Dosage: 49 MG IV
     Route: 042
     Dates: start: 20110629, end: 20111109
  13. ZOFRAN [Concomitant]
  14. TESSALON [Concomitant]
  15. SOLU-MEDROL [Concomitant]
  16. TUSSI-ORGANIDIN [Concomitant]

REACTIONS (7)
  - RENAL FAILURE ACUTE [None]
  - INFECTION [None]
  - BONE MARROW FAILURE [None]
  - PNEUMONITIS [None]
  - LEUKOCYTOSIS [None]
  - BREAST CANCER METASTATIC [None]
  - PNEUMONIA [None]
